FAERS Safety Report 9924980 (Version 2)
Quarter: 2014Q1

REPORT INFORMATION
  Report Type: Spontaneous
  Country: GB (occurrence: None)
  Receive Date: 20140221
  Receipt Date: 20140304
  Transmission Date: 20141002
  Serious: Yes (Hospitalization)
  Sender: FDA-Public Use
  Company Number: GB-20140008

PATIENT
  Age: 40 Year
  Sex: Female

DRUGS (1)
  1. DOTAREM [Suspect]
     Indication: NUCLEAR MAGNETIC RESONANCE IMAGING ABDOMINAL
     Dosage: 20 ML (20 ML, 1 IN 1 D), INTRAVENOUS (NOT OTHEWISE SPECIFIED)
     Route: 042
     Dates: start: 20140204, end: 20140204

REACTIONS (7)
  - Injection site urticaria [None]
  - Paraesthesia oral [None]
  - Chest discomfort [None]
  - Dry mouth [None]
  - Pruritus [None]
  - Rash generalised [None]
  - Malaise [None]
